FAERS Safety Report 10049994 (Version 1)
Quarter: 2014Q1

REPORT INFORMATION
  Report Type: Spontaneous
  Country: US (occurrence: None)
  Receive Date: 20140331
  Receipt Date: 20140331
  Transmission Date: 20141002
  Serious: Yes (Other)
  Sender: FDA-Public Use
  Company Number: None

PATIENT
  Age: 85 Year
  Sex: Female
  Weight: 133.81 kg

DRUGS (1)
  1. POTASSIUM CHLORIDE ER [Suspect]
     Indication: HYPOKALAEMIA
     Route: 048

REACTIONS (2)
  - Vomiting [None]
  - Abdominal discomfort [None]
